FAERS Safety Report 18823984 (Version 2)
Quarter: 2021Q1

REPORT INFORMATION
  Report Type: Spontaneous
  Country: US (occurrence: US)
  Receive Date: 20210201
  Receipt Date: 20210312
  Transmission Date: 20210419
  Serious: Yes (Hospitalization)
  Sender: FDA-Public Use
  Company Number: US-PFIZER INC-2020259337

PATIENT
  Age: 92 Year
  Sex: Male
  Weight: 63.49 kg

DRUGS (1)
  1. RETACRIT [Suspect]
     Active Substance: EPOETIN ALFA-EPBX
     Indication: MYELODYSPLASTIC SYNDROME
     Dosage: 60000 IU, WEEKLY
     Route: 058

REACTIONS (1)
  - COVID-19 [Unknown]
